FAERS Safety Report 7196998-1 (Version None)
Quarter: 2010Q4

REPORT INFORMATION
  Report Type: 
  Country: None (occurrence: None)
  Receive Date: 20101224
  Receipt Date: 20101220
  Transmission Date: 20110411
  Serious: Yes (Death)
  Sender: FDA-Public Use
  Company Number: DE-AMGEN-DEUSP2010010967

PATIENT

DRUGS (3)
  1. ENBREL FERTIGSPRITZE [Suspect]
     Indication: RHEUMATOID ARTHRITIS
     Dosage: 50 MG, 1X/DAY
     Dates: start: 20100112
  2. ENBREL FERTIGSPRITZE [Suspect]
     Indication: PRODUCT USED FOR UNKNOWN INDICATION
  3. GLUCOCORTICOIDS [Concomitant]

REACTIONS (1)
  - DEATH [None]
